FAERS Safety Report 6957898-2 (Version None)
Quarter: 2010Q3

REPORT INFORMATION
  Report Type: 
  Country: None (occurrence: None)
  Receive Date: 20100830
  Receipt Date: 20100830
  Transmission Date: 20110219
  Serious: Yes (Hospitalization)
  Sender: FDA-Public Use
  Company Number: None

PATIENT
  Age: 73 Year
  Sex: Female

DRUGS (1)
  1. TRAZODONE HCL [Suspect]
     Dosage: TAKE 1 AND ONE HALF TABLETS AT BEDTIME
     Dates: start: 20100607, end: 20100705

REACTIONS (3)
  - AMNESIA [None]
  - MEDICATION ERROR [None]
  - OVERDOSE [None]
